FAERS Safety Report 17826302 (Version 1)
Quarter: 2020Q2

REPORT INFORMATION
  Report Type: Report from Study
  Country: None (occurrence: JP)
  Receive Date: 20200526
  Receipt Date: 20200526
  Transmission Date: 20200714
  Serious: Yes (Death)
  Sender: FDA-Public Use
  Company Number: JP-ABBVIE-18P-087-3125965-00

PATIENT
  Age: 52 Year
  Sex: Female
  Weight: 48.3 kg

DRUGS (28)
  1. DEXAMETHASONE. [Concomitant]
     Active Substance: DEXAMETHASONE
     Indication: STOMATITIS
     Dosage: UNK
     Route: 002
     Dates: start: 20181003, end: 20181123
  2. FRADIOMYCIN SULFATE [Concomitant]
     Indication: KERATITIS
  3. REBAMIPIDE [Concomitant]
     Active Substance: REBAMIPIDE
     Indication: KERATITIS
  4. FLUOROMETHOLONE. [Concomitant]
     Active Substance: FLUOROMETHOLONE
     Indication: DRY EYE
     Dosage: 4 DROPS
     Route: 047
     Dates: start: 20180711, end: 20181123
  5. FLUOROMETHOLONE. [Concomitant]
     Active Substance: FLUOROMETHOLONE
     Indication: KERATITIS
  6. THEOPHYLLINE [Concomitant]
     Active Substance: THEOPHYLLINE ANHYDROUS
     Indication: BRONCHIOLITIS
  7. SUVOREXANT. [Concomitant]
     Active Substance: SUVOREXANT
     Indication: INSOMNIA
     Dosage: 20 MG, HS
     Route: 048
     Dates: start: 20180718, end: 20181123
  8. AZITHROMYCIN ANHYDROUS. [Concomitant]
     Active Substance: AZITHROMYCIN ANHYDROUS
     Indication: BRONCHIOLITIS
  9. MONOAMMONIUM GLYCYRRHIZINATE [Concomitant]
     Active Substance: AMMONIUM GLYCYRRHIZATE
     Indication: PROPHYLAXIS
     Dosage: 150/150/150
     Route: 048
     Dates: start: 20180517, end: 20181123
  10. DIHYDROCODEINE PHOSPHATE [Concomitant]
     Active Substance: DIHYDROCODEINE PHOSPHATE
     Indication: CHRONIC GRAFT VERSUS HOST DISEASE
     Dosage: 30/60/12 BID
     Route: 048
     Dates: start: 20181015, end: 20181123
  11. IBRUTINIB [Suspect]
     Active Substance: IBRUTINIB
     Indication: CHRONIC GRAFT VERSUS HOST DISEASE
     Route: 048
     Dates: start: 20181029, end: 20181122
  12. URSODEOXYCHOLIC ACID [Concomitant]
     Active Substance: URSODIOL
     Indication: PROPHYLAXIS
     Dosage: 600 MG, TID
     Route: 048
     Dates: start: 20180813, end: 20181123
  13. WHITE PETROLATUM [Concomitant]
     Active Substance: PETROLATUM
     Indication: PROPHYLAXIS
     Dosage: UNK UNK, PRN
     Route: 062
     Dates: start: 20181003, end: 20181123
  14. THEOPHYLLINE [Concomitant]
     Active Substance: THEOPHYLLINE ANHYDROUS
     Indication: CHRONIC GRAFT VERSUS HOST DISEASE
     Dosage: 800 MG, BID
     Route: 048
     Dates: start: 20181019, end: 20181123
  15. LANSOPRAZOLE. [Concomitant]
     Active Substance: LANSOPRAZOLE
     Indication: GASTRITIS PROPHYLAXIS
     Dosage: 15 MG, QD
     Route: 048
     Dates: start: 20180518, end: 20181123
  16. ACICLOVIR [Concomitant]
     Active Substance: ACYCLOVIR
     Indication: INFECTION PROPHYLAXIS
     Dosage: 200 MG, QD
     Route: 048
     Dates: start: 20180711, end: 20181123
  17. LEVOCETIRIZINE HYDROCHLORIDE [Concomitant]
     Active Substance: LEVOCETIRIZINE HYDROCHLORIDE
     Indication: DERMATITIS ATOPIC
     Dosage: 5 MG, HS
     Route: 048
     Dates: start: 20180625, end: 20181122
  18. FRADIOMYCIN SULFATE [Concomitant]
     Indication: DRY EYE
     Dosage: HS
     Route: 062
     Dates: start: 20181015, end: 20181123
  19. DIHYDROCODEINE PHOSPHATE [Concomitant]
     Active Substance: DIHYDROCODEINE PHOSPHATE
     Indication: BRONCHIOLITIS
  20. AZITHROMYCIN ANHYDROUS. [Concomitant]
     Active Substance: AZITHROMYCIN ANHYDROUS
     Indication: CHRONIC GRAFT VERSUS HOST DISEASE
     Dosage: 250 MG, QD
     Route: 048
     Dates: start: 20181019, end: 20181123
  21. PREDNISONE. [Suspect]
     Active Substance: PREDNISONE
     Dosage: 40 MG, QD
     Route: 048
     Dates: start: 20181106, end: 20181122
  22. EPRAZINONE HYDROCHLORIDE [Concomitant]
     Active Substance: EPRAZINONE HYDROCHLORIDE
     Indication: CHRONIC GRAFT VERSUS HOST DISEASE
     Dosage: 20 MG, PRN
     Route: 048
     Dates: start: 20181003, end: 20181123
  23. REBAMIPIDE [Concomitant]
     Active Substance: REBAMIPIDE
     Indication: DRY EYE
     Dosage: 4 DROPS
     Route: 047
     Dates: start: 20180723, end: 20181123
  24. PREDNISOLONE. [Concomitant]
     Active Substance: PREDNISOLONE
     Indication: CHRONIC GRAFT VERSUS HOST DISEASE
     Dosage: 50 MG, BID
     Route: 048
     Dates: start: 20181018, end: 20181105
  25. PREDNISONE. [Suspect]
     Active Substance: PREDNISONE
     Indication: CHRONIC GRAFT VERSUS HOST DISEASE
     Dosage: 40 MG, QD
     Route: 048
     Dates: start: 20181019, end: 20181105
  26. SULFAMETHOXAZOLE AND TRIMETHOPRIM [Concomitant]
     Active Substance: SULFAMETHOXAZOLE\TRIMETHOPRIM
     Indication: INFECTION PROPHYLAXIS
     Dosage: 400/80
     Route: 048
     Dates: start: 20180622, end: 20181123
  27. SALMETEROL XINAFOATE [Concomitant]
     Active Substance: SALMETEROL XINAFOATE
     Indication: CHRONIC GRAFT VERSUS HOST DISEASE
     Dosage: 145/200 MCG BID
     Route: 002
     Dates: start: 20181019, end: 20181123
  28. SALMETEROL XINAFOATE [Concomitant]
     Active Substance: SALMETEROL XINAFOATE
     Indication: BRONCHIOLITIS

REACTIONS (1)
  - Pneumonia fungal [Fatal]

NARRATIVE: CASE EVENT DATE: 20181121
